FAERS Safety Report 7560856-0 (Version None)
Quarter: 2011Q2

REPORT INFORMATION
  Report Type: 
  Country: None (occurrence: None)
  Receive Date: 20110621
  Receipt Date: 20101112
  Transmission Date: 20111010
  Serious: No
  Sender: FDA-Public Use
  Company Number: US-ASTRAZENECA-2010SE54271

PATIENT
  Age: 58 Year
  Sex: Female

DRUGS (5)
  1. ATACAND [Suspect]
     Route: 048
  2. ATENOLOL [Concomitant]
  3. NEXIUM [Suspect]
     Indication: OESOPHAGEAL DISORDER
     Route: 048
     Dates: start: 20101105
  4. PLAVIX [Concomitant]
  5. ATIVAN [Concomitant]

REACTIONS (4)
  - PAROSMIA [None]
  - HYPERHIDROSIS [None]
  - DYSGEUSIA [None]
  - HOT FLUSH [None]
